FAERS Safety Report 25446444 (Version 1)
Quarter: 2025Q2

REPORT INFORMATION
  Report Type: Spontaneous
  Country: US (occurrence: None)
  Receive Date: 20250617
  Receipt Date: 20250617
  Transmission Date: 20250716
  Serious: No
  Sender: FDA-CTU
  Company Number: None

PATIENT
  Age: 36 Year
  Sex: Male

DRUGS (1)
  1. INVOKANA [Suspect]
     Active Substance: CANAGLIFLOZIN
     Dates: start: 20240410, end: 20240420

REACTIONS (3)
  - Rash erythematous [None]
  - Rash pruritic [None]
  - Insomnia [None]

NARRATIVE: CASE EVENT DATE: 20240422
